FAERS Safety Report 5420855-1 (Version None)
Quarter: 2007Q3

REPORT INFORMATION
  Report Type: 
  Country: None (occurrence: None)
  Receive Date: 20070816
  Receipt Date: 20070807
  Transmission Date: 20080115
  Serious: Yes (Hospitalization)
  Sender: FDA-Public Use
  Company Number: 2007-03704

PATIENT
  Age: 53 Year
  Sex: Male
  Weight: 74 kg

DRUGS (10)
  1. COLCHICUM JTL LIQ [Suspect]
     Indication: FAMILIAL MEDITERRANEAN FEVER
     Dosage: 0.5
     Dates: start: 20070101, end: 20070101
  2. ANGIOMAX [Suspect]
     Dosage: 55 MG, IV BOLUS, 130 MG/HR, INTRAVENOUS
     Route: 040
     Dates: start: 20070124, end: 20070124
  3. ANGIOMAX [Suspect]
     Dosage: 55 MG, IV BOLUS, 130 MG/HR, INTRAVENOUS
     Route: 040
     Dates: start: 20070124, end: 20070124
  4. OMEPRAZOLE (OMEPRADEX) (OMEPRAZOLE) [Concomitant]
  5. MICROPIRIN (ACETYLSALICYLIC ACID) [Concomitant]
  6. PLAVIX [Concomitant]
  7. NORMALOL [Concomitant]
  8. ENALAPRIL (ENALADEX) (ENALAPRIL) [Concomitant]
  9. SIMVASTATIN (SIMVACOR) (SIMVASTATIN) [Concomitant]
  10. CITALOPRAM HYDROBROMIDE (RECITAL) [Concomitant]

REACTIONS (4)
  - HAEMORRHOIDAL HAEMORRHAGE [None]
  - HEPATIC STEATOSIS [None]
  - MICROCYTIC ANAEMIA [None]
  - RECTAL HAEMORRHAGE [None]
